FAERS Safety Report 8098001 (Version 6)
Quarter: 2013Q4

REPORT INFORMATION
  Report Type: Spontaneous
  Country: US (occurrence: US)
  Receive Date: 20110819
  Receipt Date: 20131224
  Transmission Date: 20140711
  Serious: Yes (Other)
  Sender: FDA-Public Use
  Company Number: US-ROCHE-797286

PATIENT
  Age: 16 Year
  Sex: Male
  Weight: 94.43 kg

DRUGS (1)
  1. ACCUTANE [Suspect]
     Indication: ACNE
     Route: 048
     Dates: start: 19921102, end: 19930331

REACTIONS (5)
  - Colitis ulcerative [Unknown]
  - Depression [Unknown]
  - Injury [Unknown]
  - Localised infection [Unknown]
  - Dry skin [Unknown]
